FAERS Safety Report 5609134-7 (Version None)
Quarter: 2008Q1

REPORT INFORMATION
  Report Type: 
  Country: None (occurrence: None)
  Receive Date: 20080131
  Receipt Date: 20080121
  Transmission Date: 20080703
  Serious: Yes (Hospitalization)
  Sender: FDA-Public Use
  Company Number: FR-WYE-G00916008

PATIENT
  Sex: Female

DRUGS (11)
  1. EFFEXOR [Suspect]
     Dosage: UNKNOWN
     Route: 048
     Dates: start: 20030101, end: 20070701
  2. HEMIGOXINE NATIVELLE [Concomitant]
  3. ANASTROZOLE [Concomitant]
  4. LYRICA [Concomitant]
  5. PREVISCAN [Concomitant]
     Dosage: UNKNOWN
  6. TRINIPATCH [Concomitant]
     Dosage: 10 MG TOTAL DAILY
  7. LEVOTHYROX [Concomitant]
     Dosage: 125 ?G TOTAL DAILY
  8. DIFFU K [Concomitant]
     Dosage: 3 DOSES TOTAL DAILY
  9. LASILIX [Concomitant]
     Dosage: 20 MG TOTAL DAILY
  10. TRILEPTAL [Suspect]
     Indication: EPILEPSY
     Dosage: UNKNOWN
     Route: 048
     Dates: start: 20030101, end: 20070701
  11. LOXEN [Concomitant]

REACTIONS (9)
  - C-REACTIVE PROTEIN INCREASED [None]
  - CHOLESTASIS [None]
  - CONFUSIONAL STATE [None]
  - CYTOLYTIC HEPATITIS [None]
  - GENERAL PHYSICAL HEALTH DETERIORATION [None]
  - HYPERPARATHYROIDISM [None]
  - HYPOCALCAEMIA [None]
  - HYPONATRAEMIA [None]
  - IRON DEFICIENCY ANAEMIA [None]
